FAERS Safety Report 26105851 (Version 2)
Quarter: 2025Q4

REPORT INFORMATION
  Report Type: Report from Study
  Country: EU (occurrence: EU)
  Receive Date: 20251201
  Receipt Date: 20251229
  Transmission Date: 20260118
  Serious: Yes (Disabling, Other)
  Sender: TEVA
  Company Number: EU-TEVA-VS-3396846

PATIENT
  Age: 59 Year
  Sex: Female

DRUGS (4)
  1. TERIPARATIDE [Suspect]
     Active Substance: TERIPARATIDE
     Indication: Osteoporosis
     Dosage: FORM STRENGTH: 20 MCG/ 80MCL
     Route: 065
     Dates: start: 20251119
  2. CALCIUM CARBONATE [Concomitant]
     Active Substance: CALCIUM CARBONATE
     Indication: Osteoporosis
     Dosage: FORM STRENGTH: 600/400, END DATE: CONTINUES.
     Route: 065
     Dates: start: 20251117
  3. MODAFINIL [Concomitant]
     Active Substance: MODAFINIL
     Indication: Somnolence
     Dosage: START DATE: SOME TIME AGO; END DATE: CONTINUES.
  4. DEXKETOPROFEN TROMETAMOL [Concomitant]
     Active Substance: DEXKETOPROFEN TROMETAMOL
     Indication: Pain
     Dosage: DOSE: TWO-THREE DAILIES; START DATE: SOME TIME AGO; END DATE: CONTINUES

REACTIONS (5)
  - Migraine [Not Recovered/Not Resolved]
  - Headache [Recovered/Resolved]
  - Fatigue [Not Recovered/Not Resolved]
  - Pruritus [Not Recovered/Not Resolved]
  - Nausea [Not Recovered/Not Resolved]

NARRATIVE: CASE EVENT DATE: 20251120
